FAERS Safety Report 16010119 (Version 2)
Quarter: 2019Q2

REPORT INFORMATION
  Report Type: Report from Study
  Country: None (occurrence: TR)
  Receive Date: 20190225
  Receipt Date: 20190523
  Transmission Date: 20190711
  Serious: Yes (Hospitalization)
  Sender: FDA-Public Use
  Company Number: TR-ABBVIE-19S-161-2670690-00

PATIENT
  Age: 53 Year
  Sex: Male

DRUGS (1)
  1. DUODOPA [Suspect]
     Active Substance: CARBIDOPA\LEVODOPA
     Indication: PARKINSON^S DISEASE
     Dosage: MD 9.00(ML) CD 2.20(ML) ED 1.00(ML)
     Route: 050
     Dates: start: 20170607

REACTIONS (3)
  - Stoma site discharge [Recovered/Resolved]
  - Stoma site erythema [Recovered/Resolved]
  - Nasal turbinate hypertrophy [Recovered/Resolved]

NARRATIVE: CASE EVENT DATE: 20190210
